FAERS Safety Report 10007445 (Version 2)
Quarter: 2014Q1

REPORT INFORMATION
  Report Type: Report from Study
  Country: GB (occurrence: GB)
  Receive Date: 20140313
  Receipt Date: 20140321
  Transmission Date: 20141002
  Serious: Yes (Hospitalization)
  Sender: FDA-Public Use
  Company Number: GB-PFIZER INC-2014064320

PATIENT
  Age: 80 Year
  Sex: Male

DRUGS (1)
  1. IBUPROFEN [Suspect]
     Indication: RHEUMATOID ARTHRITIS
     Dosage: 200 MG, 3X/DAY
     Route: 048
     Dates: start: 20100426

REACTIONS (1)
  - Gastroenteritis viral [Recovered/Resolved]
